FAERS Safety Report 6000053-3 (Version None)
Quarter: 2008Q4

REPORT INFORMATION
  Report Type: 
  Country: None (occurrence: None)
  Receive Date: 20081215
  Receipt Date: 20081208
  Transmission Date: 20090506
  Serious: Yes (Other)
  Sender: FDA-Public Use
  Company Number: B0532739A

PATIENT
  Age: 58 Year
  Sex: Female

DRUGS (7)
  1. SERETIDE [Suspect]
     Indication: ASTHMA
     Dosage: 1PUFF TWICE PER DAY
     Route: 055
  2. VENTOLIN [Suspect]
     Indication: ASTHMA
     Dosage: 100MCG AS REQUIRED
  3. TRAMADOL HCL [Concomitant]
  4. DICLOFENAC [Concomitant]
  5. LOSARTAN POTASSIUM [Concomitant]
  6. FRUSEMIDE [Concomitant]
  7. SIMVASTATIN [Concomitant]

REACTIONS (6)
  - BRONCHIAL DISORDER [None]
  - CARDIOMEGALY [None]
  - COUGH [None]
  - DYSPNOEA [None]
  - FLUID RETENTION [None]
  - PULMONARY OEDEMA [None]
